APPROVED DRUG PRODUCT: OBREDON
Active Ingredient: GUAIFENESIN; HYDROCODONE BITARTRATE
Strength: 200MG/5ML;2.5MG/5ML
Dosage Form/Route: SOLUTION;ORAL
Application: N205474 | Product #001
Applicant: SOVEREIGN PHARMACEUTICALS LLC
Approved: Nov 14, 2014 | RLD: Yes | RS: No | Type: DISCN

PATENTS:
Patent 9549907 | Expires: Nov 13, 2035
Patent 9808431 | Expires: Nov 13, 2035
Patent 10105324 | Expires: Nov 13, 2035